FAERS Safety Report 16481975 (Version 1)
Quarter: 2019Q2

REPORT INFORMATION
  Report Type: Spontaneous
  Country: SE (occurrence: SE)
  Receive Date: 20190627
  Receipt Date: 20190627
  Transmission Date: 20190711
  Serious: Yes (Hospitalization)
  Sender: FDA-Public Use
  Company Number: SE-SA-2019SA167067

PATIENT
  Sex: Female

DRUGS (8)
  1. STILNOCT [Suspect]
     Active Substance: ZOLPIDEM TARTRATE
     Dosage: 40 MG
     Dates: start: 20190304, end: 20190304
  2. NOZINAN [Suspect]
     Active Substance: LEVOMEPROMAZINE
     Dosage: 125 MG
     Dates: start: 20190304, end: 20190304
  3. PROMETHAZINE [Suspect]
     Active Substance: PROMETHAZINE\PROMETHAZINE HYDROCHLORIDE
     Indication: OVERDOSE
     Dosage: 750 MG
     Route: 048
     Dates: start: 20190304, end: 20190304
  4. HYDROXYZINE [Suspect]
     Active Substance: HYDROXYZINE HYDROCHLORIDE
     Indication: OVERDOSE
     Dosage: 625 MG
     Dates: start: 20190304, end: 20190304
  5. MORPHINE SALT NOT SPECIFIED [Suspect]
     Active Substance: MORPHINE
     Dosage: 30 MG
     Dates: start: 20190304, end: 20190304
  6. PROMETHAZINE HYDROCHLORIDE. [Suspect]
     Active Substance: PROMETHAZINE HYDROCHLORIDE
     Indication: OVERDOSE
     Dosage: 125 MG
     Dates: start: 20190304, end: 20190304
  7. QUETIAPINE FUMARATE. [Suspect]
     Active Substance: QUETIAPINE FUMARATE
     Indication: OVERDOSE
     Dosage: 2000 MG
     Dates: start: 20190304, end: 20190304
  8. ALIMEMAZINE TARTRATE [Suspect]
     Active Substance: TRIMEPRAZINE
     Dosage: 100 MG
     Dates: start: 20190304, end: 20190304

REACTIONS (3)
  - Intentional self-injury [Unknown]
  - Intentional overdose [Unknown]
  - Fatigue [Unknown]

NARRATIVE: CASE EVENT DATE: 20190304
